FAERS Safety Report 21986276 (Version 2)
Quarter: 2023Q1

REPORT INFORMATION
  Report Type: Report from Study
  Country: AT (occurrence: AT)
  Receive Date: 20230213
  Receipt Date: 20230226
  Transmission Date: 20230418
  Serious: Yes (Other)
  Sender: FDA-Public Use
  Company Number: AT-ABBVIE-4304392

PATIENT
  Sex: Male

DRUGS (1)
  1. HUMIRA [Suspect]
     Active Substance: ADALIMUMAB
     Indication: Crohn^s disease
     Route: 058
     Dates: start: 20181024

REACTIONS (3)
  - Intestinal stenosis [Not Recovered/Not Resolved]
  - Coronavirus infection [Recovered/Resolved]
  - Inflammatory marker decreased [Recovered/Resolved]

NARRATIVE: CASE EVENT DATE: 20220401
